FAERS Safety Report 4450652-5 (Version None)
Quarter: 2004Q3

REPORT INFORMATION
  Report Type: 
  Country: None (occurrence: None)
  Receive Date: 20040914
  Receipt Date: 20040901
  Transmission Date: 20050211
  Serious: Yes (Hospitalization)
  Sender: FDA-Public Use
  Company Number: 2004231485US

PATIENT
  Age: 46 Year
  Sex: Female

DRUGS (2)
  1. ZYVOX [Suspect]
  2. CITALOPRAM [Suspect]
     Indication: DEPRESSION

REACTIONS (7)
  - BACTERIAL INFECTION [None]
  - CALCULUS URETERIC [None]
  - CONFUSIONAL STATE [None]
  - DISORIENTATION [None]
  - DRUG INTERACTION [None]
  - LETHARGY [None]
  - SEPSIS [None]
